FAERS Safety Report 21422618 (Version 1)
Quarter: 2022Q4

REPORT INFORMATION
  Report Type: Spontaneous
  Country: SD (occurrence: SD)
  Receive Date: 20221007
  Receipt Date: 20221007
  Transmission Date: 20230113
  Serious: Yes (Death)
  Sender: FDA-Public Use
  Company Number: SD-AMNEAL PHARMACEUTICALS-2022-AMRX-02792

PATIENT
  Age: 33 Year
  Sex: Female

DRUGS (1)
  1. TRANEXAMIC ACID [Suspect]
     Active Substance: TRANEXAMIC ACID
     Indication: Spinal anaesthesia
     Route: 037

REACTIONS (5)
  - Myoclonic epilepsy [Fatal]
  - Tachycardia [Fatal]
  - Cardiac arrest [Fatal]
  - Wrong product administered [Fatal]
  - Incorrect route of product administration [Fatal]
